FAERS Safety Report 10284737 (Version 1)
Quarter: 2014Q3

REPORT INFORMATION
  Report Type: Spontaneous
  Country: US (occurrence: None)
  Receive Date: 20140702
  Receipt Date: 20140702
  Transmission Date: 20150326
  Serious: Yes (Disabling)
  Sender: FDA-Public Use
  Company Number: None

PATIENT
  Age: 64 Year
  Sex: Male
  Weight: 83.92 kg

DRUGS (1)
  1. LEVOFLOXACIN 500MG [Suspect]
     Active Substance: LEVOFLOXACIN
     Indication: BRONCHITIS
     Dosage: 500MG 1 PILL DAILY, ONCE DAILY, TAKEN BY MOUTH
     Route: 048
     Dates: start: 20140625, end: 20140629

REACTIONS (6)
  - Pain in extremity [None]
  - Arthralgia [None]
  - Joint swelling [None]
  - Arthritis [None]
  - Insomnia [None]
  - Gait disturbance [None]

NARRATIVE: CASE EVENT DATE: 20140625
